FAERS Safety Report 13831059 (Version 2)
Quarter: 2017Q3

REPORT INFORMATION
  Report Type: Report from Study
  Country: US (occurrence: US)
  Receive Date: 20170803
  Receipt Date: 20170808
  Transmission Date: 20171127
  Serious: No
  Sender: FDA-Public Use
  Company Number: US-UCBSA-2017030272

PATIENT
  Age: 71 Year
  Sex: Female

DRUGS (1)
  1. LACOSAMIDE. [Suspect]
     Active Substance: LACOSAMIDE
     Indication: EPILEPSY
     Dosage: 200 MG
     Dates: start: 20170724

REACTIONS (1)
  - Drug dispensing error [Unknown]

NARRATIVE: CASE EVENT DATE: 20170724
